FAERS Safety Report 8914350 (Version 2)
Quarter: 2013Q1

REPORT INFORMATION
  Report Type: Spontaneous
  Country: CA (occurrence: CA)
  Receive Date: 20121119
  Receipt Date: 20130128
  Transmission Date: 20140127
  Serious: Yes (Death)
  Sender: FDA-Public Use
  Company Number: CA-ASTRAZENECA-2012SE86207

PATIENT
  Age: 35 Year
  Sex: Female
  Weight: 113.4 kg

DRUGS (2)
  1. SEROQUEL [Suspect]
     Indication: DEPRESSION
     Route: 048
  2. CITALOPRAM [Suspect]
     Indication: BORDERLINE PERSONALITY DISORDER
     Route: 065

REACTIONS (1)
  - Toxicity to various agents [Fatal]
